FAERS Safety Report 25603109 (Version 1)
Quarter: 2025Q3

REPORT INFORMATION
  Report Type: Spontaneous
  Country: US (occurrence: US)
  Receive Date: 20250724
  Receipt Date: 20250724
  Transmission Date: 20251021
  Serious: Yes (Hospitalization, Other)
  Sender: AZURITY PHARMACEUTICALS
  Company Number: US-AZURITY PHARMACEUTICALS, INC.-AZR202507-002062

PATIENT

DRUGS (7)
  1. IVERMECTIN [Interacting]
     Active Substance: IVERMECTIN
     Indication: Product used for unknown indication
     Route: 065
  2. REGORAFENIB [Interacting]
     Active Substance: REGORAFENIB
     Indication: Osteosarcoma
     Route: 065
  3. REGORAFENIB [Interacting]
     Active Substance: REGORAFENIB
     Indication: Metastases to lung
  4. DOCETAXEL [Concomitant]
     Active Substance: DOCETAXEL
     Indication: Osteosarcoma
     Route: 065
  5. DOCETAXEL [Concomitant]
     Active Substance: DOCETAXEL
     Indication: Metastases to lung
  6. GEMCITABINE [Concomitant]
     Active Substance: GEMCITABINE
     Indication: Osteosarcoma
     Route: 065
  7. GEMCITABINE [Concomitant]
     Active Substance: GEMCITABINE
     Indication: Metastases to lung

REACTIONS (7)
  - Neurotoxicity [Recovered/Resolved]
  - Toxicity to various agents [Recovered/Resolved]
  - Acute kidney injury [Recovered/Resolved]
  - Somnolence [Recovered/Resolved]
  - Drug interaction [Unknown]
  - Prescription drug used without a prescription [Unknown]
  - Intentional product misuse [Unknown]
